FAERS Safety Report 8810359 (Version 1)
Quarter: 2012Q4

REPORT INFORMATION
  Report Type: 
  Country: US (occurrence: US)
  Receive Date: 20120926
  Receipt Date: 20120926
  Transmission Date: 20130627
  Serious: No
  Sender: FDA-Public Use
  Company Number: US-009507513-1209USA005726

PATIENT
  Age: 45 Year
  Sex: Female

DRUGS (1)
  1. SAPHRIS [Suspect]
     Dosage: 10 mg, UNK
     Route: 060

REACTIONS (9)
  - Dysstasia [Unknown]
  - Vision blurred [Unknown]
  - Muscle twitching [Unknown]
  - Muscle spasms [Unknown]
  - Dyskinesia [Unknown]
  - Sudden onset of sleep [Unknown]
  - Gait disturbance [Unknown]
  - Dizziness [Unknown]
  - Dysarthria [Unknown]
